FAERS Safety Report 9251222 (Version 1)
Quarter: 2013Q2

REPORT INFORMATION
  Report Type: Spontaneous
  Country: BR (occurrence: BR)
  Receive Date: 20130424
  Receipt Date: 20130424
  Transmission Date: 20140414
  Serious: Yes (Other)
  Sender: FDA-Public Use
  Company Number: BR-SANOFI-AVENTIS-2013SA038221

PATIENT
  Age: 64 Year
  Sex: Female
  Weight: 104 kg

DRUGS (37)
  1. CLOPIDOGREL BISULFATE [Suspect]
     Indication: ACUTE CORONARY SYNDROME
     Route: 048
     Dates: start: 20110102, end: 20110102
  2. CLOPIDOGREL BISULFATE [Suspect]
     Indication: ACUTE CORONARY SYNDROME
     Route: 048
     Dates: start: 20110103, end: 20110103
  3. AAS [Suspect]
     Indication: ACUTE CORONARY SYNDROME
     Route: 048
     Dates: start: 20110102, end: 20110102
  4. AAS [Suspect]
     Indication: ACUTE CORONARY SYNDROME
     Route: 048
     Dates: start: 20110103, end: 20110115
  5. BLINDED THERAPY [Suspect]
     Indication: ACUTE CORONARY SYNDROME
     Dosage: BOLUS AND INFUSION
     Route: 042
     Dates: start: 20110103, end: 20110103
  6. ENOXAPARIN [Concomitant]
     Route: 058
     Dates: start: 20110102, end: 20110103
  7. ENOXAPARIN [Concomitant]
     Route: 058
     Dates: start: 20110104, end: 20110110
  8. ENOXAPARIN [Concomitant]
     Route: 058
     Dates: start: 20110111, end: 20110113
  9. ENOXAPARIN [Concomitant]
     Route: 058
     Dates: start: 20110113, end: 20110114
  10. PREDNISONE [Concomitant]
     Dates: start: 20110112, end: 20110115
  11. TYLEX [Concomitant]
     Dates: start: 20110111, end: 20110115
  12. CITALOPRAM [Concomitant]
     Dates: start: 20110113, end: 20110115
  13. BUSCOPAN [Concomitant]
     Dates: start: 20110103, end: 20110103
  14. ONDANSETRON [Concomitant]
     Dates: start: 20110102, end: 20110102
  15. FUROSEMIDE [Concomitant]
     Dates: start: 20110106, end: 20110106
  16. FUROSEMIDE [Concomitant]
     Dates: start: 20110103, end: 20110103
  17. AMLODIPINE [Concomitant]
     Dates: start: 20110102, end: 20110104
  18. AMLODIPINE [Concomitant]
     Dates: start: 20110105, end: 20110115
  19. PROPRANOLOL HYDROCHLORIDE [Concomitant]
     Dates: start: 20110103, end: 20110103
  20. CHLORTALIDONE [Concomitant]
     Dates: start: 20110103, end: 20110103
  21. ENALAPRIL [Concomitant]
     Dates: start: 20110103, end: 20110106
  22. VALSARTAN [Concomitant]
     Dates: start: 20110106, end: 20110107
  23. METOPROLOL [Concomitant]
     Dates: start: 20110103, end: 20110104
  24. ATENOLOL [Concomitant]
     Dates: start: 20110104, end: 20110115
  25. SIMVASTATIN [Concomitant]
     Dates: start: 20110103, end: 20110107
  26. GLYCERYL TRINITRATE [Concomitant]
     Dates: start: 20110103, end: 20110104
  27. OMEPRAZOLE [Concomitant]
     Dates: start: 20110103, end: 20110107
  28. OMEPRAZOLE [Concomitant]
     Dates: start: 20110111, end: 20110115
  29. MORPHINE [Concomitant]
     Dates: start: 20110112, end: 20110112
  30. MORPHINE [Concomitant]
     Dates: start: 20110113, end: 20110113
  31. CIPROFLOXACIN [Concomitant]
     Dates: start: 20110104, end: 20110111
  32. MONOCORDIL [Concomitant]
     Dates: start: 20110104, end: 20110115
  33. BROMAZEPAM [Concomitant]
     Dates: start: 20110106, end: 20110106
  34. BROMAZEPAM [Concomitant]
     Dates: start: 20110108, end: 20110108
  35. DIAZEPAM [Concomitant]
     Dates: start: 20110109, end: 20110109
  36. DIAZEPAM [Concomitant]
     Dates: start: 20110110, end: 20110114
  37. METAMUCIL [Concomitant]
     Dates: start: 20110109, end: 20110115

REACTIONS (1)
  - Haemoglobin decreased [Not Recovered/Not Resolved]
